FAERS Safety Report 7325937-5 (Version None)
Quarter: 2011Q1

REPORT INFORMATION
  Report Type: 
  Country: None (occurrence: None)
  Receive Date: 20110218
  Receipt Date: 20110204
  Transmission Date: 20110831
  Serious: Yes (Hospitalization, Other)
  Sender: FDA-Public Use
  Company Number: 824801

PATIENT
  Age: 67 Year
  Sex: Male

DRUGS (6)
  1. OXALIPLATIN [Suspect]
     Indication: CHEMOTHERAPY
     Dosage: 750 MG MILLIGRAMS, INTRAVENOUS
     Route: 042
     Dates: start: 20080515, end: 20080515
  2. ONDANSETRON [Concomitant]
  3. FLUOROURACIL [Suspect]
     Indication: CHEMOTHERAPY
     Dosage: 1050 MG MILLIGRAMS, INTRAVENOUS
     Route: 042
     Dates: start: 20080515, end: 20080516
  4. RESCUVOLIN [Suspect]
     Indication: CHEMOTHERAPY
     Dosage: 100 MG MILLIGRAMS, INTRAVENOUS
     Route: 042
     Dates: start: 20080515, end: 20080516
  5. NEULASTA [Suspect]
     Indication: CHEMOTHERAPY
     Dosage: 6 MG MILLIGRAMS, INTRAVENOUS
     Route: 042
     Dates: start: 20080512, end: 20080517
  6. DEXAMETHASONE [Suspect]
     Indication: PRODUCT USED FOR UNKNOWN INDICATION
     Dosage: 8 MG MILLIGRAMS, INTRAVENOUS
     Route: 042
     Dates: start: 20080515, end: 20080516

REACTIONS (3)
  - CHEST PAIN [None]
  - PULMONARY EMBOLISM [None]
  - DYSPNOEA [None]
